FAERS Safety Report 12091120 (Version 6)
Quarter: 2016Q3

REPORT INFORMATION
  Report Type: Spontaneous
  Country: US (occurrence: US)
  Receive Date: 20160218
  Receipt Date: 20160714
  Transmission Date: 20161109
  Serious: No
  Sender: FDA-Public Use
  Company Number: US-PFIZER INC-2016098259

PATIENT
  Age: 46 Year
  Sex: Male
  Weight: 106 kg

DRUGS (10)
  1. LOSARTAN/HCTZ [Concomitant]
     Active Substance: HYDROCHLOROTHIAZIDE\LOSARTAN
     Indication: BLOOD PRESSURE ABNORMAL
     Dosage: UNK, 1X/DAY
  2. HYDROCO/ACETAMIN [Concomitant]
     Indication: PAIN
     Dosage: UNK UNK, 2X/DAY
     Dates: start: 201505
  3. CARVEDILOL. [Concomitant]
     Active Substance: CARVEDILOL
     Indication: HYPERTENSION
     Dosage: 6.25 MG, 2X/DAY
  4. CITALOPRAM [Concomitant]
     Active Substance: CITALOPRAM HYDROBROMIDE
     Indication: PAIN
     Dosage: 20 MG PILL 1X/DAY (ONCE DAILY)
  5. SYNTHROID [Concomitant]
     Active Substance: LEVOTHYROXINE SODIUM
     Indication: THYROID DISORDER
     Dosage: 112 UG, 1X/DAY
  6. TRAZODONE [Concomitant]
     Active Substance: TRAZODONE HYDROCHLORIDE
     Indication: SLEEP DISORDER
     Dosage: 150 MG PILL 1X/DAY (ONCE DAILY)
  7. CYMBALTA [Concomitant]
     Active Substance: DULOXETINE HYDROCHLORIDE
     Indication: PAIN
     Dosage: 60 MG, 1X/DAY
  8. DEPO-TESTOSTERONE [Suspect]
     Active Substance: TESTOSTERONE CYPIONATE
     Indication: PITUITARY TUMOUR
     Dosage: 1 ML INJECTION WEEKLY
     Route: 030
     Dates: start: 20151115
  9. CORTEF /00028604/ [Concomitant]
     Indication: STEROID THERAPY
     Dosage: 15 MG, DAILY
     Dates: start: 2006
  10. MIRAPEX [Concomitant]
     Active Substance: PRAMIPEXOLE DIHYDROCHLORIDE
     Indication: RESTLESS LEGS SYNDROME
     Dosage: 0.25 MG, 2X/DAY

REACTIONS (5)
  - Injection site mass [Recovered/Resolved]
  - Product use issue [Recovered/Resolved]
  - Injection site bruising [Recovered/Resolved]
  - Product quality issue [Recovered/Resolved]
  - Drug administered at inappropriate site [Unknown]

NARRATIVE: CASE EVENT DATE: 20160213
